FAERS Safety Report 19747940 (Version 6)
Quarter: 2022Q3

REPORT INFORMATION
  Report Type: Spontaneous
  Country: JP (occurrence: JP)
  Receive Date: 20210825
  Receipt Date: 20220926
  Transmission Date: 20221027
  Serious: Yes (Death, Hospitalization)
  Sender: FDA-Public Use
  Company Number: JP-DSJP-DSJ-2021-127213

PATIENT
  Age: 81 Year
  Sex: Female
  Weight: 55.7 kg

DRUGS (1)
  1. ENHERTU [Suspect]
     Active Substance: FAM-TRASTUZUMAB DERUXTECAN-NXKI
     Indication: HER2 positive breast cancer
     Dosage: 4.4 MG/KG, ONCE EVERY 3 WK
     Route: 041
     Dates: start: 20210730, end: 20210730

REACTIONS (3)
  - Cardiac failure [Recovering/Resolving]
  - Disease progression [Fatal]
  - Underdose [Unknown]

NARRATIVE: CASE EVENT DATE: 20210730
